FAERS Safety Report 10219190 (Version 1)
Quarter: 2014Q2

REPORT INFORMATION
  Report Type: Spontaneous
  Country: US (occurrence: None)
  Receive Date: 20140604
  Receipt Date: 20140604
  Transmission Date: 20141212
  Serious: Yes (Life-Threatening, Hospitalization)
  Sender: FDA-Public Use
  Company Number: None

PATIENT
  Age: 64 Year
  Sex: Male
  Weight: 94.8 kg

DRUGS (6)
  1. KELACORE PLUS [Suspect]
     Indication: CORONARY ARTERY DISEASE
     Dosage: ONCE DAILY
     Dates: start: 20140204, end: 20140228
  2. LISINOPRIL [Concomitant]
  3. METOPROLOL [Concomitant]
  4. ASPIRIN [Concomitant]
  5. KRILL OIL [Concomitant]
  6. VITAMIN [Concomitant]

REACTIONS (3)
  - Palpitations [None]
  - Urine abnormality [None]
  - Urine analysis abnormal [None]
